FAERS Safety Report 23581133 (Version 1)
Quarter: 2024Q1

REPORT INFORMATION
  Report Type: Spontaneous
  Country: US (occurrence: US)
  Receive Date: 20240229
  Receipt Date: 20240229
  Transmission Date: 20240409
  Serious: No
  Sender: FDA-Public Use
  Company Number: US-PFIZER INC-202201135293

PATIENT
  Age: 76 Year
  Sex: Female
  Weight: 47.63 kg

DRUGS (1)
  1. IBRANCE [Suspect]
     Active Substance: PALBOCICLIB
     Indication: Breast cancer
     Dosage: 75 MG, CYCLIC (THREE WEEKS AND THEN OFF FOR 7 DAYS)

REACTIONS (2)
  - Nervousness [Unknown]
  - Inappropriate schedule of product administration [Unknown]
